FAERS Safety Report 19366680 (Version 1)
Quarter: 2021Q2

REPORT INFORMATION
  Report Type: Report from Study
  Country: CN (occurrence: CN)
  Receive Date: 20210603
  Receipt Date: 20210603
  Transmission Date: 20210717
  Serious: Yes (Life-Threatening)
  Sender: FDA-Public Use
  Company Number: CN-PFIZER INC-2021611535

PATIENT
  Age: 59 Year
  Sex: Male

DRUGS (4)
  1. CARBOPLATIN. [Suspect]
     Active Substance: CARBOPLATIN
     Indication: HYPOPHARYNGEAL CANCER
     Dosage: UNK, CYCLIC
  2. CETUXIMAB. [Suspect]
     Active Substance: CETUXIMAB
     Indication: HYPOPHARYNGEAL CANCER
     Dosage: 400 MG/M2, WEEKLY  (400 MG/M2 FOR 120 MIN)
     Route: 042
  3. CETUXIMAB. [Suspect]
     Active Substance: CETUXIMAB
     Dosage: 250 MG/M2, WEEKLY  (MAINTAINED AT 250 MG/M2 FOR 60 MIN AND ADMINISTRATED WEEKLY)
     Route: 042
  4. DOXYCYCLINE HYCLATE. [Suspect]
     Active Substance: DOXYCYCLINE HYCLATE
     Indication: HYPOPHARYNGEAL CANCER
     Dosage: UNK, CYCLIC

REACTIONS (3)
  - Rash [Unknown]
  - Skin reaction [Unknown]
  - Haematotoxicity [Unknown]
